FAERS Safety Report 4753852-X (Version None)
Quarter: 2005Q3

REPORT INFORMATION
  Report Type: 
  Country: None (occurrence: None)
  Receive Date: 20050826
  Receipt Date: 20010828
  Transmission Date: 20060218
  Serious: Yes (Hospitalization)
  Sender: FDA-Public Use
  Company Number: FR-GLAXOSMITHKLINE-B0118914A

PATIENT
  Age: 1 Day
  Sex: Male
  Weight: 3.6 kg

DRUGS (9)
  1. ZIDOVUDINE [Suspect]
     Indication: ANTIVIRAL PROPHYLAXIS
     Dates: start: 20000309, end: 20000309
  2. LAMIVUDINE [Suspect]
     Indication: HIV INFECTION
     Dosage: 150MG TWICE PER DAY
  3. STAVUDINE [Suspect]
     Indication: ANTIVIRAL PROPHYLAXIS
     Route: 048
  4. STAVUDINE [Suspect]
     Indication: HIV INFECTION
     Dosage: 40MG TWICE PER DAY
     Route: 048
  5. NELFINAVIR [Suspect]
     Indication: HIV INFECTION
     Dosage: 2250MG PER DAY
  6. INDINAVIR [Suspect]
     Indication: HIV INFECTION
     Dates: start: 20000817
  7. MAGNE B6 [Concomitant]
  8. SPASFON [Concomitant]
  9. VITAMINS [Concomitant]

REACTIONS (10)
  - ANAEMIA MACROCYTIC [None]
  - BLOOD LACTIC ACID INCREASED [None]
  - CAESAREAN SECTION [None]
  - DRUG EXPOSURE DURING PREGNANCY [None]
  - HYPERTRIGLYCERIDAEMIA [None]
  - LACTATE PYRUVATE RATIO INCREASED [None]
  - METABOLIC DISORDER [None]
  - NEUTROPENIA [None]
  - REGURGITATION OF FOOD [None]
  - THROMBOCYTHAEMIA [None]
